FAERS Safety Report 6569282-4 (Version None)
Quarter: 2010Q1

REPORT INFORMATION
  Report Type: 
  Country: None (occurrence: None)
  Receive Date: 20100201
  Receipt Date: 20100201
  Transmission Date: 20100710
  Serious: Yes (Hospitalization, Disabling, Other)
  Sender: FDA-Public Use
  Company Number: None

PATIENT
  Sex: Female
  Weight: 63.5036 kg

DRUGS (1)
  1. PHENERGAN HCL [Suspect]
     Indication: MIGRAINE
     Dosage: 25 MG IV LEFT ARM
     Route: 042
     Dates: start: 20090329

REACTIONS (2)
  - AMPUTATION [None]
  - NECROSIS ISCHAEMIC [None]
